FAERS Safety Report 6702821-9 (Version None)
Quarter: 2010Q2

REPORT INFORMATION
  Report Type: 
  Country: None (occurrence: None)
  Receive Date: 20100429
  Receipt Date: 20100429
  Transmission Date: 20101027
  Serious: No
  Sender: FDA-Public Use
  Company Number: None

PATIENT
  Sex: Female
  Weight: 73.9363 kg

DRUGS (1)
  1. PHENYTON SODIUM 1GR CAP [Suspect]
     Indication: EPILEPSY
     Dosage: 200MG TWICE DAY PO YEARS
     Route: 048

REACTIONS (1)
  - NO ADVERSE EVENT [None]
